FAERS Safety Report 10441475 (Version 3)
Quarter: 2015Q1

REPORT INFORMATION
  Report Type: Not Available
  Country: SE (occurrence: SE)
  Receive Date: 20140909
  Receipt Date: 20150203
  Transmission Date: 20150720
  Serious: Yes (Hospitalization, Other)
  Sender: FDA-Public Use
  Company Number: SE-MUNDIPHARMA DS AND PHARMACOVIGILANCE-GBR-2014-0021063

PATIENT
  Age: 48 Year
  Sex: Male

DRUGS (2)
  1. OXYNORM [Suspect]
     Active Substance: OXYCODONE HYDROCHLORIDE
     Indication: PRODUCT USED FOR UNKNOWN INDICATION
     Dosage: UNK UNK, UNK
     Route: 048
     Dates: start: 20130519, end: 20130519
  2. ENALAPRIL [Concomitant]
     Active Substance: ENALAPRIL

REACTIONS (6)
  - Pupillary light reflex tests abnormal [Unknown]
  - Tachycardia [Unknown]
  - Suicide attempt [Unknown]
  - Altered state of consciousness [Unknown]
  - Toxicity to various agents [Recovered/Resolved]
  - Snoring [Unknown]

NARRATIVE: CASE EVENT DATE: 20130519
